FAERS Safety Report 18029874 (Version 1)
Quarter: 2020Q3

REPORT INFORMATION
  Report Type: Spontaneous
  Country: RO (occurrence: RO)
  Receive Date: 20200715
  Receipt Date: 20200715
  Transmission Date: 20201103
  Serious: Yes (Hospitalization)
  Sender: FDA-Public Use
  Company Number: RO-ANIPHARMA-2020-RO-000007

PATIENT
  Age: 36 Year
  Sex: Male

DRUGS (1)
  1. HYDROCORTISONE RECTAL SUSPENSION (NON?SPECIFC) [Suspect]
     Active Substance: HYDROCORTISONE
     Indication: RASH
     Dosage: 100 MG

REACTIONS (1)
  - Thyrotoxic periodic paralysis [Recovered/Resolved]
